FAERS Safety Report 7295560-X (Version None)
Quarter: 2011Q1

REPORT INFORMATION
  Report Type: 
  Country: None (occurrence: None)
  Receive Date: 20110216
  Receipt Date: 20110125
  Transmission Date: 20110831
  Serious: Yes (Death)
  Sender: FDA-Public Use
  Company Number: US-TYCO HEALTHCARE/MALLINCKRODT-T201100227

PATIENT
  Age: 36 Year
  Sex: Female

DRUGS (4)
  1. VENLAFAXINE [Suspect]
     Route: 048
  2. OXYCODONE [Suspect]
     Route: 048
  3. PANTOPRAZOLE [Suspect]
     Route: 048
  4. OXYCODONE HCL AND ACETAMINOPHEN [Suspect]
     Route: 048

REACTIONS (1)
  - COMPLETED SUICIDE [None]
